FAERS Safety Report 10484052 (Version 1)
Quarter: 2014Q3

REPORT INFORMATION
  Report Type: Spontaneous
  Country: US (occurrence: US)
  Receive Date: 20140930
  Receipt Date: 20140930
  Transmission Date: 20150326
  Serious: Yes (Other)
  Sender: FDA-Public Use
  Company Number: US-PFIZER INC-2014268041

PATIENT
  Age: 39 Year
  Sex: Female
  Weight: 81.63 kg

DRUGS (2)
  1. ADVIL COLD AND SINUS [Suspect]
     Active Substance: IBUPROFEN\PSEUDOEPHEDRINE HYDROCHLORIDE
     Indication: SINUSITIS
  2. ADVIL COLD AND SINUS [Suspect]
     Active Substance: IBUPROFEN\PSEUDOEPHEDRINE HYDROCHLORIDE
     Indication: NASOPHARYNGITIS
     Dosage: 200 MG, 3X/DAY
     Route: 048
     Dates: start: 20140924, end: 20140927

REACTIONS (2)
  - Lip swelling [Unknown]
  - Numb chin syndrome [Unknown]

NARRATIVE: CASE EVENT DATE: 20140927
